FAERS Safety Report 24358683 (Version 1)
Quarter: 2024Q3

REPORT INFORMATION
  Report Type: Spontaneous
  Country: NL (occurrence: NL)
  Receive Date: 20240924
  Receipt Date: 20240924
  Transmission Date: 20241017
  Serious: Yes (Hospitalization, Other)
  Sender: MYLAN
  Company Number: NL-ROCHE-10000066311

PATIENT
  Age: 51 Year
  Sex: Female

DRUGS (3)
  1. OXALIPLATIN [Suspect]
     Active Substance: OXALIPLATIN
     Indication: Colorectal cancer
     Dosage: UNK
     Route: 065
  2. CAPECITABINE [Suspect]
     Active Substance: CAPECITABINE
     Indication: Colorectal cancer
     Dosage: UNK
     Route: 065
  3. BEVACIZUMAB [Suspect]
     Active Substance: BEVACIZUMAB
     Indication: Colorectal cancer
     Dosage: UNK
     Route: 065

REACTIONS (4)
  - Abdominal pain [Recovered/Resolved]
  - Metastases to liver [Unknown]
  - Troponin increased [Recovered/Resolved]
  - Electrocardiogram T wave amplitude decreased [Recovered/Resolved]

NARRATIVE: CASE EVENT DATE: 20220331
